FAERS Safety Report 23123980 (Version 1)
Quarter: 2023Q4

REPORT INFORMATION
  Report Type: Spontaneous
  Country: PL (occurrence: PL)
  Receive Date: 20231030
  Receipt Date: 20231030
  Transmission Date: 20240110
  Serious: Yes (Death, Other)
  Sender: FDA-Public Use
  Company Number: PL-ABBVIE-5463811

PATIENT
  Age: 74 Year
  Sex: Female

DRUGS (2)
  1. VENETOCLAX [Suspect]
     Active Substance: VENETOCLAX
     Indication: Acute myeloid leukaemia
     Route: 048
     Dates: start: 20221007
  2. AZACITIDINE [Concomitant]
     Active Substance: AZACITIDINE
     Indication: Product used for unknown indication

REACTIONS (5)
  - Infection [Fatal]
  - Acute myeloid leukaemia [Unknown]
  - Haemorrhagic diathesis [Unknown]
  - Off label use [Unknown]
  - Neutropenia [Unknown]

NARRATIVE: CASE EVENT DATE: 20220101
